FAERS Safety Report 7358225-1 (Version None)
Quarter: 2011Q1

REPORT INFORMATION
  Report Type: 
  Country: None (occurrence: None)
  Receive Date: 20110317
  Receipt Date: 20110309
  Transmission Date: 20110831
  Serious: Yes (Life-Threatening, Hospitalization)
  Sender: FDA-Public Use
  Company Number: FR-ROCHE-761433

PATIENT
  Sex: Male
  Weight: 57 kg

DRUGS (12)
  1. ROVALCYTE [Concomitant]
     Dates: start: 20101129
  2. MOPRAL [Concomitant]
     Dates: start: 20101126
  3. OMIX [Concomitant]
     Dates: start: 20101130
  4. BACTRIM [Concomitant]
     Dates: start: 20101127
  5. MYCOPHENOLATE MOFETIL [Suspect]
     Dosage: FREQUENCY: DAILY.
     Route: 048
     Dates: start: 20101124
  6. PREDNISONE [Suspect]
     Dosage: FREQUENCY: DAILY
     Route: 048
     Dates: start: 20101201
  7. AMLOR [Concomitant]
     Dates: start: 20101128
  8. EVEROLIMUS [Suspect]
     Dosage: FREQUENCY: DAILY
     Route: 048
     Dates: start: 20101129
  9. PLAQUENIL [Concomitant]
     Dates: start: 20101217
  10. TARDYFERON [Concomitant]
     Dates: start: 20101129
  11. BISOPROLOL FUMARATE [Concomitant]
     Dates: start: 20101129
  12. LASIX [Concomitant]
     Dates: start: 20110112

REACTIONS (2)
  - ANGINA UNSTABLE [None]
  - LUNG DISORDER [None]
